FAERS Safety Report 5223448-4 (Version None)
Quarter: 2007Q1

REPORT INFORMATION
  Report Type: 
  Country: None (occurrence: None)
  Receive Date: 20070125
  Receipt Date: 20070111
  Transmission Date: 20070707
  Serious: Yes (Hospitalization)
  Sender: FDA-Public Use
  Company Number: 234992

PATIENT
  Age: 70 Year
  Sex: Male

DRUGS (1)
  1. MABTHERA (RITUXIMAB) CONC FOR SOLUTION FOR INFUSION [Suspect]
     Indication: LYMPHOMA
     Dosage: 700 MG, INTRAVENOUS
     Route: 042
     Dates: start: 20061201, end: 20061201

REACTIONS (1)
  - CYTOLYTIC HEPATITIS [None]
